FAERS Safety Report 13418526 (Version 7)
Quarter: 2019Q2

REPORT INFORMATION
  Report Type: Spontaneous
  Country: US (occurrence: US)
  Receive Date: 20170406
  Receipt Date: 20190423
  Transmission Date: 20190711
  Serious: Yes (Hospitalization)
  Sender: FDA-Public Use
  Company Number: US-ACTELION-A-NJ2016-146697

PATIENT
  Age: 66 Year
  Sex: Female
  Weight: 51.7 kg

DRUGS (5)
  1. VELETRI [Suspect]
     Active Substance: EPOPROSTENOL
     Indication: PULMONARY HYPERTENSION
     Dosage: 20 NG/KG, PER MIN
     Route: 042
     Dates: start: 20161122
  2. SILDENAFIL CITRATE. [Concomitant]
     Active Substance: SILDENAFIL CITRATE
  3. VELETRI [Suspect]
     Active Substance: EPOPROSTENOL
     Dosage: 54 NG/KG, PER MIN
     Route: 042
  4. VELETRI [Suspect]
     Active Substance: EPOPROSTENOL
     Dosage: 26 NG/KG, PER MIN
     Route: 042
  5. VELETRI [Suspect]
     Active Substance: EPOPROSTENOL
     Dosage: 30 NG/KG, PER MIN
     Route: 042

REACTIONS (17)
  - Nausea [Unknown]
  - Abdominal pain upper [Unknown]
  - Dermatitis contact [Unknown]
  - Abdominal discomfort [Unknown]
  - Headache [Unknown]
  - Pain in extremity [Unknown]
  - Erythema [Unknown]
  - Dyspnoea exertional [Unknown]
  - Chest pain [Unknown]
  - Abdominal distension [Unknown]
  - Pain in jaw [Unknown]
  - Peripheral swelling [Unknown]
  - Rash [Unknown]
  - Flushing [Unknown]
  - Dyspnoea [Unknown]
  - Catheter site erythema [Unknown]
  - Rash generalised [Unknown]

NARRATIVE: CASE EVENT DATE: 20161205
